FAERS Safety Report 9962933 (Version 1)
Quarter: 2014Q1

REPORT INFORMATION
  Report Type: Spontaneous
  Country: US (occurrence: US)
  Receive Date: 20140305
  Receipt Date: 20140305
  Transmission Date: 20141002
  Serious: No
  Sender: FDA-Public Use
  Company Number: US-TEVA-466723USA

PATIENT
  Age: 37 Year
  Sex: Female
  Weight: 70.37 kg

DRUGS (2)
  1. PARAGARD 380A [Suspect]
     Indication: CONTRACEPTION
     Route: 015
     Dates: end: 20140302
  2. LEXAPRO [Concomitant]
     Indication: AFFECTIVE DISORDER

REACTIONS (1)
  - Device expulsion [Recovered/Resolved]
